FAERS Safety Report 15979368 (Version 1)
Quarter: 2019Q1

REPORT INFORMATION
  Report Type: Spontaneous
  Country: US (occurrence: US)
  Receive Date: 20190216
  Receipt Date: 20190216
  Transmission Date: 20190418
  Serious: Yes (Disabling)
  Sender: FDA-Public Use
  Company Number: None

PATIENT
  Age: 53 Year
  Sex: Male
  Weight: 83.25 kg

DRUGS (1)
  1. LARIAM [Suspect]
     Active Substance: MEFLOQUINE HYDROCHLORIDE
     Indication: MALARIA PROPHYLAXIS
     Dates: start: 19910801, end: 19920131

REACTIONS (5)
  - Obsessive thoughts [None]
  - Negative thoughts [None]
  - Anxiety [None]
  - Paranoia [None]
  - Nightmare [None]

NARRATIVE: CASE EVENT DATE: 19910801
